FAERS Safety Report 15435163 (Version 1)
Quarter: 2018Q3

REPORT INFORMATION
  Report Type: Spontaneous
  Country: US (occurrence: US)
  Receive Date: 20180927
  Receipt Date: 20180927
  Transmission Date: 20181010
  Serious: No
  Sender: FDA-Public Use
  Company Number: US-INDIVIOR LIMITED-INDV-112258-2018

PATIENT

DRUGS (2)
  1. SUBLOCADE [Suspect]
     Active Substance: BUPRENORPHINE
     Indication: PRODUCT USED FOR UNKNOWN INDICATION
     Dosage: UNK, QMO (1ST DOSE)
     Route: 065
     Dates: start: 2018, end: 2018
  2. SUBLOCADE [Suspect]
     Active Substance: BUPRENORPHINE
     Dosage: UNK, QMO (2ND DOSE)
     Route: 065
     Dates: start: 2018

REACTIONS (1)
  - Drug withdrawal syndrome [Recovered/Resolved]

NARRATIVE: CASE EVENT DATE: 2018
